FAERS Safety Report 7921306-5 (Version None)
Quarter: 2011Q4

REPORT INFORMATION
  Report Type: 
  Country: None (occurrence: None)
  Receive Date: 20111117
  Receipt Date: 20111108
  Transmission Date: 20120403
  Serious: Yes (Hospitalization, Other)
  Sender: FDA-Public Use
  Company Number: US-BAYER-200942644NA

PATIENT
  Age: 22 Year
  Sex: Female
  Weight: 72 kg

DRUGS (8)
  1. PERCOCET [Concomitant]
     Route: 065
  2. CIPRO [Concomitant]
     Route: 065
  3. OXYCET [Concomitant]
     Route: 065
  4. BENADRYL [Concomitant]
     Route: 065
  5. FLAGYL [Concomitant]
     Route: 065
  6. MULTI-VITAMINS [Concomitant]
     Route: 048
     Dates: start: 20091022
  7. YAZ [Suspect]
     Indication: CONTRACEPTION
     Route: 048
     Dates: start: 20060801, end: 20071201
  8. CALCIUM [Concomitant]
     Dosage: 600 MG (DAILY DOSE), , ORAL
     Route: 048
     Dates: start: 20091022

REACTIONS (9)
  - PULMONARY EMBOLISM [None]
  - CHEST DISCOMFORT [None]
  - COUGH [None]
  - PAIN [None]
  - CHEST PAIN [None]
  - DYSPNOEA [None]
  - LOSS OF CONSCIOUSNESS [None]
  - DIZZINESS [None]
  - PULMONARY INFARCTION [None]
